FAERS Safety Report 6537301-7 (Version None)
Quarter: 2010Q1

REPORT INFORMATION
  Report Type: 
  Country: None (occurrence: None)
  Receive Date: 20100110
  Receipt Date: 20091222
  Transmission Date: 20100710
  Serious: Yes (Other)
  Sender: FDA-Public Use
  Company Number: B0622080A

PATIENT
  Sex: Female

DRUGS (2)
  1. HYCAMTIN [Suspect]
     Indication: OVARIAN CANCER
     Dosage: 2.5 MG/M2 PER DAY, INTRAVENOUS INFUSION
     Route: 042
  2. GEMCITABINE [Suspect]
     Indication: OVARIAN CANCER
     Dosage: 1000 MG/M2, PER DAY; INTRAVENOUS INFUSION
     Route: 042

REACTIONS (2)
  - DRUG TOXICITY [None]
  - FEBRILE NEUTROPENIA [None]
